FAERS Safety Report 7173058-7 (Version None)
Quarter: 2010Q4

REPORT INFORMATION
  Report Type: 
  Country: None (occurrence: None)
  Receive Date: 20101219
  Receipt Date: 20100219
  Transmission Date: 20110411
  Serious: No
  Sender: FDA-Public Use
  Company Number: US-AMGEN-KDL394052

PATIENT

DRUGS (11)
  1. ENBREL [Suspect]
     Indication: PRODUCT USED FOR UNKNOWN INDICATION
     Dosage: 50 MG, QWK
     Route: 058
  2. CODEINE SUL TAB [Concomitant]
     Dosage: 15 MG, UNK
  3. CARVEDILOL [Concomitant]
     Dosage: 125 MG, UNK
  4. NABUMETONE [Concomitant]
     Dosage: 500 MG, UNK
  5. GABAPENTIN [Concomitant]
     Dosage: 100 MG, UNK
  6. CITALOPRAM [Concomitant]
     Dosage: 10 MG, UNK
  7. CIMETIDINE [Concomitant]
     Dosage: 200 MG, UNK
  8. FLUTICASONE PROPIONATE [Concomitant]
     Dosage: 44 A?G, UNK
  9. OMEPRAZOLE [Concomitant]
     Dosage: 10 MG, UNK
  10. ALPRAZOLAM [Concomitant]
     Dosage: .5 MG, UNK
  11. ALBUTEROL SULFATE [Concomitant]
     Dosage: 1.25 MG, UNK

REACTIONS (1)
  - FIBROMYALGIA [None]
